FAERS Safety Report 12562459 (Version 1)
Quarter: 2016Q3

REPORT INFORMATION
  Report Type: Spontaneous
  Country: US (occurrence: US)
  Receive Date: 20160715
  Receipt Date: 20160715
  Transmission Date: 20161109
  Serious: No
  Sender: FDA-Public Use
  Company Number: US-BAYER-2016-129400

PATIENT
  Sex: Male
  Weight: 77.98 kg

DRUGS (2)
  1. MIRALAX [Suspect]
     Active Substance: POLYETHYLENE GLYCOL 3350
     Indication: CONSTIPATION
     Dosage: UNK
     Route: 048
     Dates: start: 2016
  2. PHILLIPS^ COLON HEALTH [Suspect]
     Active Substance: PROBIOTICS NOS
     Indication: FLATULENCE
     Dosage: 1 DF, QD WITH FOOD
     Route: 048
     Dates: start: 2015, end: 20160626

REACTIONS (5)
  - Product use issue [None]
  - Flatulence [Not Recovered/Not Resolved]
  - Diarrhoea [Recovered/Resolved]
  - Off label use [None]
  - Constipation [Recovered/Resolved]

NARRATIVE: CASE EVENT DATE: 2016
